FAERS Safety Report 12599560 (Version 1)
Quarter: 2016Q3

REPORT INFORMATION
  Report Type: Report from Study
  Country: BR (occurrence: BR)
  Receive Date: 20160727
  Receipt Date: 20160727
  Transmission Date: 20161109
  Serious: Yes (Other)
  Sender: FDA-Public Use
  Company Number: PHHY2016BR101544

PATIENT
  Age: 54 Year
  Sex: Female

DRUGS (5)
  1. DIOVAN AMLO FIX [Suspect]
     Active Substance: AMLODIPINE\VALSARTAN
     Indication: HYPERTENSION
     Dosage: 1 DF (AMLODIPINE 5 MG, VALSARTAN 320 MG), QD
     Route: 048
     Dates: start: 20151126
  2. DIOVAN HCT [Suspect]
     Active Substance: HYDROCHLOROTHIAZIDE\VALSARTAN
     Indication: HYPERTENSION
     Dosage: 1 DF (HYDROCHOLROTHIAZIDE 12.5 MG, VALSARTAN 320 MG), QD
     Route: 048
     Dates: start: 20151126
  3. AMLODIPINE [Suspect]
     Active Substance: AMLODIPINE BESYLATE
     Indication: HYPERTENSION
     Dosage: 5 MG, QD
     Route: 048
  4. IGROTON [Suspect]
     Active Substance: CHLORTHALIDONE
     Indication: PRODUCT USED FOR UNKNOWN INDICATION
     Dosage: 25 MG, QD
     Route: 048
  5. DIOVAN [Suspect]
     Active Substance: VALSARTAN
     Indication: HYPERTENSION
     Route: 065

REACTIONS (9)
  - Blood cholesterol increased [Unknown]
  - Anxiety [Unknown]
  - Blood pressure abnormal [Unknown]
  - Nervousness [Unknown]
  - Body mass index abnormal [Unknown]
  - Diabetes mellitus [Unknown]
  - Weight decreased [Unknown]
  - Drug administration error [Unknown]
  - Malaise [Unknown]

NARRATIVE: CASE EVENT DATE: 201512
